FAERS Safety Report 21311772 (Version 1)
Quarter: 2022Q3

REPORT INFORMATION
  Report Type: Spontaneous
  Country: US (occurrence: None)
  Receive Date: 20220909
  Receipt Date: 20220909
  Transmission Date: 20221027
  Serious: No
  Sender: FDA-Public Use
  Company Number: US-ARIS GLOBAL-202203-0411

PATIENT
  Sex: Female

DRUGS (13)
  1. OXERVATE [Suspect]
     Active Substance: CENEGERMIN-BKBJ
     Indication: Neurotrophic keratopathy
     Route: 047
     Dates: start: 20220215
  2. NEBIVOLOL [Concomitant]
     Active Substance: NEBIVOLOL
  3. AMLODIPINE BESYLATE [Concomitant]
     Active Substance: AMLODIPINE BESYLATE
  4. COZAAR [Concomitant]
     Active Substance: LOSARTAN POTASSIUM
  5. LATANOPROST [Concomitant]
     Active Substance: LATANOPROST
  6. TIMOLOL MALEATE [Concomitant]
     Active Substance: TIMOLOL MALEATE
  7. ASPIRIN [Concomitant]
     Active Substance: ASPIRIN
  8. VITAMINS [Concomitant]
     Active Substance: VITAMINS
  9. CALCIUM CITRATE - VITAMIN D [Concomitant]
  10. RESTASIS [Concomitant]
     Active Substance: CYCLOSPORINE
  11. LEVOTHYROXINE [Concomitant]
     Active Substance: LEVOTHYROXINE
  12. ATORVASTATIN CALCIUM [Concomitant]
     Active Substance: ATORVASTATIN CALCIUM
  13. AMLODIPINE AND ATORVASTATIN [Concomitant]
     Active Substance: AMLODIPINE BESYLATE\ATORVASTATIN CALCIUM

REACTIONS (4)
  - Eye irritation [Recovered/Resolved]
  - Lacrimation increased [Unknown]
  - Eyelid pain [Unknown]
  - Eye discharge [Unknown]
